FAERS Safety Report 8008271-X (Version None)
Quarter: 2011Q4

REPORT INFORMATION
  Report Type: 
  Country: None (occurrence: None)
  Receive Date: 20111227
  Receipt Date: 20111222
  Transmission Date: 20120403
  Serious: Yes (Hospitalization)
  Sender: FDA-Public Use
  Company Number: US-ROCHE-1022314

PATIENT
  Sex: Male
  Weight: 61.29 kg

DRUGS (4)
  1. LOMOTIL [Concomitant]
  2. GAS-X [Concomitant]
  3. OXALIPLATIN [Concomitant]
     Route: 042
  4. XELODA [Suspect]
     Indication: COLON CANCER
     Route: 048
     Dates: start: 20111121, end: 20111212

REACTIONS (4)
  - CONSTIPATION [None]
  - GALLBLADDER ENLARGEMENT [None]
  - DIARRHOEA [None]
  - MUSCLE SPASMS [None]
